FAERS Safety Report 15171623 (Version 1)
Quarter: 2018Q3

REPORT INFORMATION
  Report Type: Spontaneous
  Country: FR (occurrence: FR)
  Receive Date: 20180720
  Receipt Date: 20180720
  Transmission Date: 20181010
  Serious: Yes (Hospitalization, Other)
  Sender: FDA-Public Use
  Company Number: FR-SA-2017SA236975

PATIENT
  Sex: Female
  Weight: 56 kg

DRUGS (7)
  1. ZOPICLONE [Suspect]
     Active Substance: ZOPICLONE
     Indication: INSOMNIA
     Dosage: 1 DF, QD
     Route: 048
     Dates: start: 20170208, end: 20170707
  2. PRONTALGINE [AMOBARBITAL;CAFFEINE;CODEINE PHOSPHATE;PARACETAMOL] [Suspect]
     Active Substance: ACETAMINOPHEN\AMOBARBITAL\CAFFEINE\CODEINE PHOSPHATE
     Indication: NECK PAIN
     Dosage: 2 DF, UNK
     Route: 048
     Dates: start: 2016, end: 20170707
  3. ZOPICLONE [Suspect]
     Active Substance: ZOPICLONE
     Dosage: UNK
     Route: 048
  4. BROMAZEPAM [Suspect]
     Active Substance: BROMAZEPAM
     Indication: DEPRESSION
     Dosage: 0.25 DF, PRN
     Route: 048
  5. ZOLPIDEM TARTRATE. [Suspect]
     Active Substance: ZOLPIDEM TARTRATE
     Indication: INSOMNIA
     Dosage: UNK UNK,UNK
     Route: 048
     Dates: start: 1997, end: 20170208
  6. BOLDOFLORINE (HERBALS\SENNOSIDES) [Suspect]
     Active Substance: HERBALS\SENNOSIDES
     Dosage: 3 DF, QD
     Route: 048
  7. MODURETIC 5?50 [Suspect]
     Active Substance: AMILORIDE HYDROCHLORIDE\HYDROCHLOROTHIAZIDE
     Dosage: 1DF ,QD
     Route: 048

REACTIONS (5)
  - Toxic skin eruption [Recovered/Resolved]
  - Eczema [Recovered/Resolved]
  - Allergy to metals [None]
  - Eczema [Recovered/Resolved]
  - Eczema [None]

NARRATIVE: CASE EVENT DATE: 2016
